FAERS Safety Report 22075004 (Version 2)
Quarter: 2023Q1

REPORT INFORMATION
  Report Type: Spontaneous
  Country: US (occurrence: US)
  Receive Date: 20230308
  Receipt Date: 20230308
  Transmission Date: 20230418
  Serious: No
  Sender: FDA-Public Use
  Company Number: US-ALLERGAN-2217626US

PATIENT
  Sex: Female

DRUGS (2)
  1. DELZICOL [Suspect]
     Active Substance: MESALAMINE
     Indication: Infection
     Dosage: 2 DF, TID
  2. CANASA [Suspect]
     Active Substance: MESALAMINE
     Indication: Infection
     Dosage: UNK, PRN

REACTIONS (3)
  - Product use in unapproved indication [Unknown]
  - Condition aggravated [Not Recovered/Not Resolved]
  - Therapeutic product ineffective for unapproved indication [Unknown]
